FAERS Safety Report 7040106-4 (Version None)
Quarter: 2010Q4

REPORT INFORMATION
  Report Type: 
  Country: None (occurrence: None)
  Receive Date: 20101012
  Receipt Date: 20101001
  Transmission Date: 20110411
  Serious: Yes (Other)
  Sender: FDA-Public Use
  Company Number: PHHY2010JP59790

PATIENT
  Age: 69 Year
  Sex: Male

DRUGS (5)
  1. FLUVASTATIN [Suspect]
     Indication: DYSLIPIDAEMIA
     Dosage: 20 MG DAILY
     Route: 048
  2. DIOVAN [Suspect]
     Indication: HYPERTENSION
     Dosage: 80 MG DAILY
     Route: 048
  3. ARICEPT [Concomitant]
     Dosage: 5 MG
     Route: 048
     Dates: start: 20100501
  4. BASEN [Concomitant]
     Dosage: 0.9 MG
     Route: 048
  5. ZETIA [Concomitant]
     Dosage: 10 MG
     Route: 048

REACTIONS (4)
  - AFFECTIVE DISORDER [None]
  - CONCOMITANT DISEASE AGGRAVATED [None]
  - DEMENTIA [None]
  - TREATMENT NONCOMPLIANCE [None]
